FAERS Safety Report 9496781 (Version 1)
Quarter: 2013Q3

REPORT INFORMATION
  Report Type: Spontaneous
  Country: CN (occurrence: CN)
  Receive Date: 20130904
  Receipt Date: 20130904
  Transmission Date: 20140515
  Serious: Yes (Other)
  Sender: FDA-Public Use
  Company Number: CN-PFIZER INC-2013252710

PATIENT
  Age: 67 Year
  Sex: Female
  Weight: 60 kg

DRUGS (1)
  1. TAZOCIN [Suspect]
     Indication: URINARY TRACT INFECTION
     Dosage: 4.5 G, 3X/DAY
     Route: 042
     Dates: start: 20121212, end: 20121212

REACTIONS (5)
  - Angioedema [Recovering/Resolving]
  - Erythema [Recovering/Resolving]
  - Asthma [Recovering/Resolving]
  - Body temperature increased [Recovering/Resolving]
  - Hypersensitivity [Recovering/Resolving]
